FAERS Safety Report 20370275 (Version 1)
Quarter: 2022Q1

REPORT INFORMATION
  Report Type: Spontaneous
  Country: US (occurrence: None)
  Receive Date: 20220124
  Receipt Date: 20220124
  Transmission Date: 20220423
  Serious: Yes (Hospitalization)
  Sender: FDA-Public Use
  Company Number: None

PATIENT
  Sex: Male

DRUGS (1)
  1. HUMIRA [Suspect]
     Active Substance: ADALIMUMAB
     Indication: Crohn^s disease
     Dosage: OTHER QUANTITY : 40MG/0.8ML;?FREQUENCY : WEEKLY;?
     Route: 058
     Dates: start: 20190125

REACTIONS (3)
  - Muscle spasms [None]
  - Dehydration [None]
  - Gastrointestinal scarring [None]
